FAERS Safety Report 4283541-X (Version None)
Quarter: 2004Q1

REPORT INFORMATION
  Report Type: 
  Country: None (occurrence: None)
  Receive Date: 20040120
  Receipt Date: 20030408
  Transmission Date: 20041129
  Serious: Yes (Hospitalization)
  Sender: FDA-Public Use
  Company Number: NSADSS2003017414

PATIENT
  Age: 35 Year
  Sex: Female
  Weight: 55.7924 kg

DRUGS (1)
  1. PARAGARD T380A (INTRAUTERINE CONTRACEPTIVE DEVICE) INTRAUTERINE DEVICE [Suspect]
     Indication: INTRA-UTERINE CONTRACEPTIVE DEVICE INSERTION
     Dosage: INTRAUTERINE
     Route: 015
     Dates: start: 20030318, end: 20030405

REACTIONS (4)
  - ABDOMINAL PAIN [None]
  - INTRA-UTERINE CONTRACEPTIVE DEVICE EXPELLED [None]
  - MENORRHAGIA [None]
  - VAGINAL HAEMORRHAGE [None]
